FAERS Safety Report 8190129-7 (Version None)
Quarter: 2012Q1

REPORT INFORMATION
  Report Type: 
  Country: None (occurrence: None)
  Receive Date: 20120305
  Receipt Date: 20120208
  Transmission Date: 20120608
  Serious: Yes (Hospitalization, Other)
  Sender: FDA-Public Use
  Company Number: 2010SP006052

PATIENT
  Age: 24 Year
  Sex: Female
  Weight: 117.9352 kg

DRUGS (3)
  1. ZOLOFT [Concomitant]
  2. ATIVAN [Concomitant]
  3. NUVARING [Suspect]
     Indication: CONTRACEPTION
     Dosage: 1 DF;QM; VAG
     Route: 067
     Dates: start: 20080428, end: 20081002

REACTIONS (30)
  - PULMONARY INFARCTION [None]
  - UTERINE MALPOSITION [None]
  - BURSITIS [None]
  - LUNG INFILTRATION [None]
  - CONTUSION [None]
  - MUSCULOSKELETAL CHEST PAIN [None]
  - HERPES ZOSTER [None]
  - FIBROCYSTIC BREAST DISEASE [None]
  - PLEURAL EFFUSION [None]
  - THROMBOPHLEBITIS SUPERFICIAL [None]
  - THIRST [None]
  - HYPOAESTHESIA [None]
  - PULMONARY EMBOLISM [None]
  - DYSURIA [None]
  - MENSTRUATION IRREGULAR [None]
  - WEIGHT LOSS POOR [None]
  - NEPHROLITHIASIS [None]
  - PELVIC INFLAMMATORY DISEASE [None]
  - FLANK PAIN [None]
  - PLEURISY [None]
  - PAIN IN EXTREMITY [None]
  - ABDOMINAL PAIN [None]
  - MIGRAINE [None]
  - BRONCHITIS [None]
  - INFLUENZA [None]
  - DYSPAREUNIA [None]
  - FALLOPIAN TUBE PERFORATION [None]
  - INJECTION SITE PAIN [None]
  - ATELECTASIS [None]
  - PULMONARY FIBROSIS [None]
